FAERS Safety Report 20311796 (Version 2)
Quarter: 2022Q1

REPORT INFORMATION
  Report Type: Spontaneous
  Country: US (occurrence: US)
  Receive Date: 20220108
  Receipt Date: 20220113
  Transmission Date: 20220424
  Serious: Yes (Hospitalization, Other)
  Sender: FDA-Public Use
  Company Number: US-SA-SAC20220103000361

PATIENT
  Age: 82 Year
  Sex: Male

DRUGS (8)
  1. PLAVIX [Suspect]
     Active Substance: CLOPIDOGREL BISULFATE
     Dosage: 300 MG
  2. ASPIRIN [Suspect]
     Active Substance: ASPIRIN
     Dosage: 81 MG, QD
  3. APIXABAN [Suspect]
     Active Substance: APIXABAN
  4. TICAGRELOR [Suspect]
     Active Substance: TICAGRELOR
  5. HEPARIN [Suspect]
     Active Substance: HEPARIN SODIUM
  6. BIVALIRUDIN [Suspect]
     Active Substance: BIVALIRUDIN
     Dosage: 75 MG
  7. BETAMETHASONE SODIUM PHOSPHATE [Suspect]
     Active Substance: BETAMETHASONE SODIUM PHOSPHATE
  8. THROMBIN [Suspect]
     Active Substance: THROMBIN

REACTIONS (15)
  - Acute myocardial infarction [Unknown]
  - Diabetes mellitus [Unknown]
  - Hyperlipidaemia [Unknown]
  - Chronic kidney disease [Unknown]
  - Illness [Unknown]
  - Hypertension [Unknown]
  - Swelling [Unknown]
  - Pain [Unknown]
  - Paraesthesia [Unknown]
  - Mass [Unknown]
  - Vascular pseudoaneurysm [Unknown]
  - Thrombosis [Unknown]
  - Obstruction [Unknown]
  - Haemorrhage [Unknown]
  - Disease recurrence [Unknown]
